FAERS Safety Report 7885069-4 (Version None)
Quarter: 2011Q4

REPORT INFORMATION
  Report Type: 
  Country: None (occurrence: None)
  Receive Date: 20111102
  Receipt Date: 20111021
  Transmission Date: 20120403
  Serious: Yes (Hospitalization)
  Sender: FDA-Public Use
  Company Number: BR-BRISTOL-MYERS SQUIBB COMPANY-16197584

PATIENT
  Age: 59 Year
  Sex: Female
  Weight: 68 kg

DRUGS (13)
  1. METFORMIN HCL [Suspect]
     Dosage: DOSE:1.7G/DAY.
  2. LOSARTAN POTASSIUM AND HYDROCHLOROTHIAZIDE [Suspect]
     Dosage: DOSE INCREASED:100/25 MG.
  3. ROSUVASTATIN [Suspect]
     Dosage: 20MG/DAY.
  4. PROPATYL NITRATE [Concomitant]
  5. GLIMEPIRIDE [Concomitant]
  6. INDAPAMIDE [Concomitant]
  7. CLOPIDOGREL + ACETYLSALICYLIC ACID [Concomitant]
  8. GLYBURIDE [Suspect]
     Dosage: 1DF=5M(UNITS NOT SPECIFIED).
  9. ASPIRIN [Concomitant]
     Dosage: 2009-325MG/DAY.
  10. SIMVASTATIN [Suspect]
  11. SUSTRATE [Suspect]
  12. ATENOLOL [Suspect]
  13. EXFORGE [Concomitant]
     Dosage: 320/10 MG

REACTIONS (3)
  - COLD SWEAT [None]
  - CHEST PAIN [None]
  - BLOOD PRESSURE FLUCTUATION [None]
